FAERS Safety Report 6523059-4 (Version None)
Quarter: 2009Q4

REPORT INFORMATION
  Report Type: 
  Country: None (occurrence: None)
  Receive Date: 20091230
  Receipt Date: 20091218
  Transmission Date: 20100525
  Serious: Yes (Other)
  Sender: FDA-Public Use
  Company Number: JP-GENENTECH-295810

PATIENT
  Age: 45 Year
  Sex: Male

DRUGS (9)
  1. RITUXIMAB [Suspect]
     Indication: B-CELL LYMPHOMA
     Dosage: 375 MG/M2, UNK
     Route: 065
     Dates: end: 20020131
  2. DOXORUBICIN HCL [Concomitant]
     Indication: B-CELL LYMPHOMA
     Dosage: DOSE: 50 MG/M2 ON DAY1,FORM: INFUSION
     Route: 042
     Dates: end: 20020202
  3. CYCLOPHOSPHAMIDE [Concomitant]
     Indication: B-CELL LYMPHOMA
     Dosage: DOSE: 750 MG/M2 ON DAY1, FORM: INFUSION
     Route: 042
     Dates: end: 20020202
  4. VINCRISTINE [Concomitant]
     Indication: B-CELL LYMPHOMA
     Dosage: DOSE: 2 MG/BODY ON , FORM: INFUSION, LAST DOSE
     Route: 042
     Dates: end: 20020202
  5. PREDNISOLONE [Concomitant]
     Indication: B-CELL LYMPHOMA
     Dosage: DOSE: 100 MG ON DAY 1 THROUGH 5 AT 2 WEEKS INTERVAL
     Route: 048
     Dates: end: 20020202
  6. NEUPOGEN [Concomitant]
     Indication: DRUG USE FOR UNKNOWN INDICATION
     Dosage: UNK
     Dates: start: 20020306, end: 20020313
  7. NEUPOGEN [Concomitant]
     Dosage: UNK
     Dates: start: 20020306
  8. NEUPOGEN [Concomitant]
     Dosage: UNK
     Dates: end: 20020313
  9. NEUPOGEN [Concomitant]
     Dosage: UNK
     Dates: start: 20020401

REACTIONS (1)
  - FEBRILE NEUTROPENIA [None]
